FAERS Safety Report 14680334 (Version 4)
Quarter: 2018Q3

REPORT INFORMATION
  Report Type: Spontaneous
  Country: GR (occurrence: GR)
  Receive Date: 20180326
  Receipt Date: 20180814
  Transmission Date: 20181010
  Serious: Yes (Hospitalization, Other)
  Sender: FDA-Public Use
  Company Number: PHHY2018GR042393

PATIENT
  Age: 34 Year
  Sex: Female

DRUGS (8)
  1. AMOXICILLIN. [Suspect]
     Active Substance: AMOXICILLIN
     Dosage: EIGHT HOURLY FOR 10 DAYS
     Route: 065
  2. THYROXINE [Suspect]
     Active Substance: LEVOTHYROXINE
     Indication: PRODUCT USED FOR UNKNOWN INDICATION
     Dosage: 175 UG, BID
     Route: 065
  3. BETAMETHASONE. [Suspect]
     Active Substance: BETAMETHASONE
     Indication: PRODUCT USED FOR UNKNOWN INDICATION
     Dosage: 12 MG, QD
     Route: 030
  4. METRONIDAZOLE. [Suspect]
     Active Substance: METRONIDAZOLE
     Dosage: EIGHT HOURLY FOR 10 DAYS
     Route: 065
  5. AMOXICILLIN. [Suspect]
     Active Substance: AMOXICILLIN
     Indication: PRODUCT USED FOR UNKNOWN INDICATION
     Dosage: UNK UNK, TID
     Route: 065
  6. CEFUROXIME. [Suspect]
     Active Substance: CEFUROXIME
     Indication: ENTEROBACTER INFECTION
     Dosage: 750 MG, TID
     Route: 065
  7. METRONIDAZOLE. [Suspect]
     Active Substance: METRONIDAZOLE
     Indication: PRODUCT USED FOR UNKNOWN INDICATION
     Dosage: UNK UNK, TID
     Route: 065
  8. BETADINE [Suspect]
     Active Substance: POVIDONE-IODINE
     Indication: PRODUCT USED FOR UNKNOWN INDICATION
     Dosage: UNK
     Route: 067

REACTIONS (8)
  - Premature rupture of membranes [Unknown]
  - Twin pregnancy [Unknown]
  - Live birth [Unknown]
  - Premature delivery [Unknown]
  - Delayed delivery [Unknown]
  - Exposure during pregnancy [Unknown]
  - Premature labour [Unknown]
  - Maternal exposure during pregnancy [Unknown]
